FAERS Safety Report 8289466-7 (Version None)
Quarter: 2012Q1

REPORT INFORMATION
  Report Type: 
  Country: None (occurrence: None)
  Receive Date: 20120316
  Receipt Date: 20090806
  Transmission Date: 20120608
  Serious: Yes (Other)
  Sender: FDA-Public Use
  Company Number: PHEH2009US08924

PATIENT
  Sex: Female

DRUGS (2)
  1. TEKTURNA [Suspect]
     Dosage: 150 UNK, UNK
  2. COZAAR [Concomitant]

REACTIONS (3)
  - BLOOD BICARBONATE INCREASED [None]
  - BLOOD CREATINE INCREASED [None]
  - PROTEINURIA [None]
